FAERS Safety Report 5847758-2 (Version None)
Quarter: 2008Q3

REPORT INFORMATION
  Report Type: 
  Country: None (occurrence: None)
  Receive Date: 20080814
  Receipt Date: 20080804
  Transmission Date: 20090109
  Serious: Yes (Hospitalization)
  Sender: FDA-Public Use
  Company Number: DSA_32261_2008

PATIENT
  Sex: Female

DRUGS (15)
  1. LORAZEPAM [Suspect]
     Indication: DRUG USE FOR UNKNOWN INDICATION
     Dosage: 1 MG 1X ORAL
     Route: 048
     Dates: start: 20080803, end: 20080803
  2. GABAPENTIN [Suspect]
     Indication: DRUG USE FOR UNKNOWN INDICATION
     Dosage: 300 MG 1X ORAL
     Route: 048
     Dates: start: 20080803, end: 20080803
  3. SERTINDOLE (SERDALUT - SERTINDOLE) [Suspect]
     Indication: DRUG USE FOR UNKNOWN INDICATION
     Dosage: 4 MG 1X ORAL
     Route: 048
     Dates: start: 20080803, end: 20080803
  4. STANGYL /00051802/ (STANGYL - TRIMIPRAMINE MALEATE) (NOT SPECIFIED) [Suspect]
     Indication: DRUG USE FOR UNKNOWN INDICATION
     Dosage: 50 MG 1X ORAL
     Route: 048
     Dates: start: 20080803, end: 20080803
  5. TETRAZEPAM (TETRAZEPAM) [Suspect]
     Indication: DRUG USE FOR UNKNOWN INDICATION
     Dosage: 1 DF 1X ORAL
     Route: 048
     Dates: start: 20080803, end: 20080803
  6. RISPERDAL [Suspect]
     Indication: DRUG USE FOR UNKNOWN INDICATION
     Dosage: 1 MG 1X ORAL
     Route: 048
     Dates: start: 20080803, end: 20080803
  7. ZALDIAR /01573601/ (ZALDIAR - PARACETAMOL/TRAMADOL HYDROCHLORIDE) (NOT [Suspect]
     Indication: DRUG USE FOR UNKNOWN INDICATION
     Dosage: 1 DF 1X ORAL
     Route: 048
     Dates: start: 20080803, end: 20080803
  8. FENTANYL-100 [Suspect]
     Indication: DRUG USE FOR UNKNOWN INDICATION
     Dosage: 1 DF 1X TRANSDERMAL
     Route: 062
     Dates: start: 20080803, end: 20080803
  9. NEXIUM [Concomitant]
  10. SIMVASTATIN [Concomitant]
  11. ASPIRIN [Concomitant]
  12. METOPROLOL TARTRATE [Concomitant]
  13. CITALOPRAM HYDROBROMIDE [Concomitant]
  14. NORVASC [Concomitant]
  15. NOVALGIN [Concomitant]

REACTIONS (4)
  - DISORIENTATION [None]
  - DISTURBANCE IN ATTENTION [None]
  - DYSARTHRIA [None]
  - WRONG DRUG ADMINISTERED [None]
